FAERS Safety Report 4950692-3 (Version None)
Quarter: 2006Q1

REPORT INFORMATION
  Report Type: 
  Country: None (occurrence: None)
  Receive Date: 20060321
  Receipt Date: 20060321
  Transmission Date: 20060701
  Serious: Yes (Other)
  Sender: FDA-Public Use
  Company Number: None

PATIENT
  Age: 53 Year
  Sex: Male
  Weight: 122.5 kg

DRUGS (6)
  1. VALSARTAN [Suspect]
  2. DIPHENHYDRAMINE HCL [Concomitant]
  3. PREDNISONE [Concomitant]
  4. RANITIDINE HCL [Concomitant]
  5. ORLISTAT [Concomitant]
  6. ZOLMITRIPTAN [Concomitant]

REACTIONS (1)
  - RASH [None]
